FAERS Safety Report 7917976-8 (Version None)
Quarter: 2011Q4

REPORT INFORMATION
  Report Type: 
  Country: None (occurrence: None)
  Receive Date: 20111116
  Receipt Date: 20111114
  Transmission Date: 20120403
  Serious: Yes (Death)
  Sender: FDA-Public Use
  Company Number: PHHY2011PL79269

PATIENT
  Sex: Female

DRUGS (2)
  1. LETROZOLE [Suspect]
     Indication: BREAST CANCER
     Dates: start: 20070709
  2. FASLODEX [Concomitant]
     Dates: start: 20070118, end: 20070709

REACTIONS (1)
  - DEATH [None]
